FAERS Safety Report 10261507 (Version 2)
Quarter: 2014Q2

REPORT INFORMATION
  Report Type: Spontaneous
  Country: US (occurrence: US)
  Receive Date: 20140626
  Receipt Date: 20140626
  Transmission Date: 20141212
  Serious: No
  Sender: FDA-Public Use
  Company Number: US-MYLANLABS-2013S1012860

PATIENT
  Sex: Male
  Weight: 101.61 kg

DRUGS (7)
  1. PERFOROMIST (FORMOTEROL FUMARATE) INHALATION SOLUTION [Suspect]
     Indication: REACTIVE AIRWAYS DYSFUNCTION SYNDROME
     Route: 055
     Dates: start: 2011, end: 20130609
  2. PERFOROMIST (FORMOTEROL FUMARATE) INHALATION SOLUTION [Suspect]
     Indication: CHRONIC OBSTRUCTIVE PULMONARY DISEASE
     Route: 055
     Dates: start: 2011, end: 20130609
  3. PROVIGIL /01265601/ [Concomitant]
     Indication: NARCOLEPSY
     Dosage: CATAPLEXY
  4. BUDESONIDE [Concomitant]
  5. LASIX [Concomitant]
     Indication: FLUID RETENTION
  6. ANDROGEL [Concomitant]
  7. PROAIR /00139502/ [Concomitant]
     Dosage: 2 PUFFS

REACTIONS (6)
  - Raynaud^s phenomenon [Recovered/Resolved]
  - Blood pressure increased [Not Recovered/Not Resolved]
  - Fatigue [Not Recovered/Not Resolved]
  - Insomnia [Recovered/Resolved]
  - Musculoskeletal stiffness [Not Recovered/Not Resolved]
  - Myalgia [Not Recovered/Not Resolved]
